FAERS Safety Report 9285136 (Version 2)
Quarter: 2013Q2

REPORT INFORMATION
  Report Type: Report from Study
  Country: CA (occurrence: CA)
  Receive Date: 20130513
  Receipt Date: 20130621
  Transmission Date: 20140414
  Serious: Yes (Other)
  Sender: FDA-Public Use
  Company Number: CA-ABBOTT-13P-028-1088453-00

PATIENT
  Sex: Female

DRUGS (1)
  1. KALETRA TABLETS 200/50 [Suspect]
     Indication: MATERNAL EXPOSURE TIMING UNSPECIFIED
     Route: 064

REACTIONS (2)
  - Breech presentation [Recovered/Resolved]
  - Foetal exposure during pregnancy [Unknown]
